FAERS Safety Report 6902688-X (Version None)
Quarter: 2010Q3

REPORT INFORMATION
  Report Type: 
  Country: None (occurrence: None)
  Receive Date: 20100803
  Receipt Date: 20081028
  Transmission Date: 20110219
  Serious: No
  Sender: FDA-Public Use
  Company Number: US-PFIZER INC-2008061624

PATIENT
  Sex: Female
  Weight: 127.3 kg

DRUGS (14)
  1. LYRICA [Suspect]
     Indication: POST HERPETIC NEURALGIA
     Dates: start: 20080101
  2. DRUG, UNSPECIFIED [Suspect]
  3. ABILIFY [Concomitant]
  4. BENZTROPINE MESYLATE [Concomitant]
  5. BUPROPION [Concomitant]
  6. BUSPIRONE HCL [Concomitant]
  7. FENTANYL CITRATE [Concomitant]
  8. FERROUS GLUCONATE [Concomitant]
  9. LEVOTHYROXINE [Concomitant]
  10. PROCHLORPERAZINE MALEATE [Concomitant]
  11. TRAMADOL HYDROCHLORIDE [Concomitant]
  12. URSODIOL [Concomitant]
  13. ZOLMITRIPTAN [Concomitant]
  14. ZOLPIDEM TARTRATE [Concomitant]

REACTIONS (4)
  - DISTURBANCE IN ATTENTION [None]
  - SOMNOLENCE [None]
  - THINKING ABNORMAL [None]
  - WEIGHT INCREASED [None]
